FAERS Safety Report 10247557 (Version 2)
Quarter: 2015Q3

REPORT INFORMATION
  Report Type: Spontaneous
  Country: US (occurrence: US)
  Receive Date: 20140619
  Receipt Date: 20150717
  Transmission Date: 20151125
  Serious: Yes (Other)
  Sender: FDA-Public Use
  Company Number: US-SA-2014SA078345

PATIENT
  Age: 66 Year
  Sex: Female

DRUGS (12)
  1. PLAVIX [Suspect]
     Active Substance: CLOPIDOGREL BISULFATE
     Indication: GASTRIC ULCER
     Route: 048
     Dates: start: 200105, end: 200807
  2. PLAVIX [Suspect]
     Active Substance: CLOPIDOGREL BISULFATE
     Indication: DYSPEPSIA
     Route: 048
     Dates: start: 200105, end: 200807
  3. PLAVIX [Suspect]
     Active Substance: CLOPIDOGREL BISULFATE
     Indication: CEREBROVASCULAR ACCIDENT
     Route: 048
     Dates: start: 200105, end: 200807
  4. PLAVIX [Suspect]
     Active Substance: CLOPIDOGREL BISULFATE
     Indication: LETHARGY
     Route: 048
     Dates: start: 200105, end: 200807
  5. PLAVIX [Suspect]
     Active Substance: CLOPIDOGREL BISULFATE
     Indication: ANXIETY
     Route: 048
     Dates: start: 200105, end: 200807
  6. PLAVIX [Suspect]
     Active Substance: CLOPIDOGREL BISULFATE
     Indication: ANXIETY
     Route: 048
     Dates: start: 200105, end: 200807
  7. PLAVIX [Suspect]
     Active Substance: CLOPIDOGREL BISULFATE
     Indication: STRESS
     Route: 048
     Dates: start: 200105, end: 200807
  8. PLAVIX [Suspect]
     Active Substance: CLOPIDOGREL BISULFATE
     Indication: SLEEP DISORDER
     Route: 048
     Dates: start: 200105, end: 200807
  9. BABY ASPIRIN [Concomitant]
     Active Substance: ASPIRIN
  10. PLAVIX [Suspect]
     Active Substance: CLOPIDOGREL BISULFATE
     Indication: TRANSIENT ISCHAEMIC ATTACK
     Route: 048
     Dates: start: 200105, end: 200807
  11. PLAVIX [Suspect]
     Active Substance: CLOPIDOGREL BISULFATE
     Indication: DEPRESSION
     Route: 048
     Dates: start: 200105, end: 200807
  12. PLAVIX [Suspect]
     Active Substance: CLOPIDOGREL BISULFATE
     Indication: AMNESIA
     Route: 048
     Dates: start: 200105, end: 200807

REACTIONS (6)
  - Gastric ulcer [Unknown]
  - Depression [Unknown]
  - Vomiting [Unknown]
  - Dyspepsia [Unknown]
  - Multiple injuries [Unknown]
  - Gastrointestinal haemorrhage [Unknown]

NARRATIVE: CASE EVENT DATE: 200807
